FAERS Safety Report 14025593 (Version 1)
Quarter: 2017Q3

REPORT INFORMATION
  Report Type: Spontaneous
  Country: IT (occurrence: IT)
  Receive Date: 20170929
  Receipt Date: 20170929
  Transmission Date: 20171128
  Serious: Yes (Other)
  Sender: FDA-Public Use
  Company Number: IT-ROCHE-1997876

PATIENT
  Age: 76 Year
  Sex: Male

DRUGS (10)
  1. MYOCET [Suspect]
     Active Substance: DOXORUBICIN
     Indication: B-CELL LYMPHOMA
     Dosage: 1 CYCLE
     Route: 042
     Dates: start: 20170121, end: 20170121
  2. MYOCET [Suspect]
     Active Substance: DOXORUBICIN
     Dosage: 3 CYCLE
     Route: 042
     Dates: start: 20170210, end: 20170210
  3. CYCLOPHOSPHAMIDE. [Suspect]
     Active Substance: CYCLOPHOSPHAMIDE
     Dosage: 3 CYCLE
     Route: 042
     Dates: start: 20170210, end: 20170210
  4. RITUXIMAB. [Suspect]
     Active Substance: RITUXIMAB
     Dosage: CYCLICAL
     Route: 042
     Dates: start: 20170209, end: 20170209
  5. VINCRISTINE [Suspect]
     Active Substance: VINCRISTINE
     Dosage: 3 CYCLE
     Route: 042
     Dates: start: 20170210, end: 20170210
  6. LINEZOLID. [Concomitant]
     Active Substance: LINEZOLID
     Indication: INFECTION
     Route: 065
     Dates: start: 20170227
  7. VINCRISTINE [Suspect]
     Active Substance: VINCRISTINE
     Indication: B-CELL LYMPHOMA
     Dosage: 1 CYCLE
     Route: 042
     Dates: start: 20170121, end: 20170121
  8. LONQUEX [Suspect]
     Active Substance: LIPEGFILGRASTIM
     Indication: NEUTROPENIA
     Dosage: CYCLICAL
     Route: 065
     Dates: start: 20170108, end: 20170211
  9. CYCLOPHOSPHAMIDE. [Suspect]
     Active Substance: CYCLOPHOSPHAMIDE
     Indication: B-CELL LYMPHOMA
     Dosage: 1 CYCLE
     Route: 042
     Dates: start: 20170121, end: 20170121
  10. RITUXIMAB. [Suspect]
     Active Substance: RITUXIMAB
     Indication: B-CELL LYMPHOMA
     Dosage: CYCLICAL
     Route: 042
     Dates: start: 20170121, end: 20170121

REACTIONS (1)
  - Pulmonary toxicity [Recovered/Resolved]

NARRATIVE: CASE EVENT DATE: 20170228
